FAERS Safety Report 8672362 (Version 4)
Quarter: 2012Q4

REPORT INFORMATION
  Report Type: 
  Country: JP (occurrence: JP)
  Receive Date: 20120719
  Receipt Date: 20121005
  Transmission Date: 20130627
  Serious: Yes (Hospitalization)
  Sender: FDA-Public Use
  Company Number: JP-JNJFOC-20120707089

PATIENT
  Age: 73 Year
  Sex: Female
  Weight: 54 kg

DRUGS (19)
  1. SIMPONI [Suspect]
     Indication: RHEUMATOID ARTHRITIS
     Route: 058
     Dates: start: 20120605, end: 20120605
  2. SIMPONI [Suspect]
     Indication: RHEUMATOID ARTHRITIS
     Route: 058
     Dates: start: 20111101
  3. PREDNISOLONE [Suspect]
     Indication: RHEUMATOID ARTHRITIS
     Route: 048
     Dates: end: 20120703
  4. BAKTAR [Suspect]
     Indication: PNEUMOCYSTIS JIROVECI PNEUMONIA
     Route: 048
     Dates: start: 20120727, end: 20120820
  5. BAKTAR [Suspect]
     Indication: PNEUMOCYSTIS JIROVECI PNEUMONIA
     Route: 048
     Dates: start: 20120703, end: 20120721
  6. BAKTAR [Suspect]
     Indication: PNEUMOCYSTIS JIROVECI PNEUMONIA
     Route: 048
     Dates: start: 20120821
  7. CELECOX [Concomitant]
     Indication: RHEUMATOID ARTHRITIS
     Route: 048
     Dates: end: 20120703
  8. EPOGIN [Concomitant]
     Indication: ANAEMIA
     Dosage: dose 6000 DF
     Route: 058
     Dates: start: 20120410
  9. EPOGIN [Concomitant]
     Indication: RENAL FAILURE CHRONIC
     Dosage: dose 6000 DF
     Route: 058
     Dates: start: 20120410
  10. ARTIST [Concomitant]
     Indication: HYPERTENSION
     Route: 048
  11. FERROMIA [Concomitant]
     Indication: ANAEMIA
     Route: 048
  12. MYSLEE [Concomitant]
     Indication: INSOMNIA
     Route: 048
  13. FRANDOL [Concomitant]
     Indication: HYPERTENSION
     Route: 062
  14. MILTAX [Concomitant]
     Indication: RHEUMATOID ARTHRITIS
     Route: 061
  15. ARGAMATE [Concomitant]
     Indication: RENAL FAILURE CHRONIC
     Route: 048
  16. CARDENALIN [Concomitant]
     Indication: HYPERTENSION
     Route: 048
  17. OMEPRAL [Concomitant]
     Indication: GASTRITIS
     Route: 048
  18. CALBLOCK [Concomitant]
     Indication: HYPERTENSION
     Route: 048
  19. FEBURIC [Concomitant]
     Indication: HYPERURICAEMIA
     Dosage: dose 10 DF
     Route: 048
     Dates: start: 20120313

REACTIONS (2)
  - Pneumocystis jiroveci pneumonia [Recovered/Resolved]
  - Platelet count decreased [Recovering/Resolving]
